FAERS Safety Report 7444907-X (Version None)
Quarter: 2011Q2

REPORT INFORMATION
  Report Type: 
  Country: None (occurrence: None)
  Receive Date: 20110429
  Receipt Date: 20110418
  Transmission Date: 20111010
  Serious: Yes (Other)
  Sender: FDA-Public Use
  Company Number: PHHY2010US56793

PATIENT
  Sex: Female
  Weight: 87.982 kg

DRUGS (7)
  1. EXJADE [Suspect]
     Indication: MYELODYSPLASTIC SYNDROME
     Dosage: 500 MG, QD
     Route: 048
     Dates: start: 20070511
  2. VIDAZA [Suspect]
     Indication: MYELODYSPLASTIC SYNDROME
     Dosage: 112MG IV DAILY X 5D
     Route: 042
  3. NEXIUM [Concomitant]
     Route: 048
  4. SINGULAIR [Concomitant]
     Route: 048
  5. METFORMIN HYDROCHLORIDE [Concomitant]
     Route: 048
  6. LEXAPRO [Concomitant]
     Route: 048
  7. EXJADE [Suspect]
     Indication: IRON OVERLOAD

REACTIONS (2)
  - ULCERATIVE KERATITIS [None]
  - EYE DISORDER [None]
